FAERS Safety Report 12255212 (Version 3)
Quarter: 2017Q3

REPORT INFORMATION
  Report Type: Spontaneous
  Country: AR (occurrence: AR)
  Receive Date: 20160412
  Receipt Date: 20170817
  Transmission Date: 20171127
  Serious: Yes (Hospitalization, Other)
  Sender: FDA-Public Use
  Company Number: AR-AMGEN-ARGSP2016044764

PATIENT
  Age: 63 Year
  Sex: Female

DRUGS (1)
  1. ENBREL [Suspect]
     Active Substance: ETANERCEPT
     Indication: RHEUMATOID ARTHRITIS
     Dosage: 50 MG, WEEKLY
     Route: 065
     Dates: start: 20150205, end: 20160326

REACTIONS (3)
  - Pleural effusion [Recovering/Resolving]
  - Rib fracture [Recovering/Resolving]
  - Accident [Recovering/Resolving]

NARRATIVE: CASE EVENT DATE: 20160326
